FAERS Safety Report 5335871-8 (Version None)
Quarter: 2007Q2

REPORT INFORMATION
  Report Type: 
  Country: None (occurrence: None)
  Receive Date: 20070228
  Receipt Date: 20061204
  Transmission Date: 20071010
  Serious: No
  Sender: FDA-Public Use
  Company Number: S06-USA-05084-01

PATIENT
  Sex: 0

DRUGS (1)
  1. CAMPRAL [Suspect]

REACTIONS (1)
  - URTICARIA [None]
